FAERS Safety Report 9822317 (Version 1)
Quarter: 2014Q1

REPORT INFORMATION
  Report Type: Spontaneous
  Country: CA (occurrence: None)
  Receive Date: 20140115
  Receipt Date: 20140115
  Transmission Date: 20141002
  Serious: Yes (Hospitalization)
  Sender: FDA-Public Use
  Company Number: UTC-042976

PATIENT
  Age: 77 Year
  Sex: Female

DRUGS (1)
  1. REMODULIN [Suspect]
     Indication: PULMONARY ARTERIAL HYPERTENSION
     Dosage: 0.032 ML/HOUR, SUBCUTANEOUS
     Route: 058
     Dates: start: 20131204

REACTIONS (4)
  - Dyspnoea [None]
  - Chest pain [None]
  - Back pain [None]
  - Chest discomfort [None]
